FAERS Safety Report 6226738-1 (Version None)
Quarter: 2009Q2

REPORT INFORMATION
  Report Type: 
  Country: None (occurrence: None)
  Receive Date: 20090612
  Receipt Date: 20090603
  Transmission Date: 20091009
  Serious: Yes (Other)
  Sender: FDA-Public Use
  Company Number: PT-ROCHE-636841

PATIENT
  Sex: Male

DRUGS (1)
  1. MIRCERA [Suspect]
     Route: 058

REACTIONS (1)
  - ANGIOEDEMA [None]
